FAERS Safety Report 8117667-7 (Version None)
Quarter: 2012Q1

REPORT INFORMATION
  Report Type: 
  Country: None (occurrence: None)
  Receive Date: 20120207
  Receipt Date: 20120202
  Transmission Date: 20120608
  Serious: Yes (Hospitalization)
  Sender: FDA-Public Use
  Company Number: US-SHIRE-ALL1-2012-00622

PATIENT
  Sex: Male

DRUGS (6)
  1. LISINOPRIL [Concomitant]
     Indication: BLOOD PRESSURE INCREASED
     Dosage: 40 MG, 1X/DAY:QD
     Route: 048
     Dates: start: 20090101
  2. SIMCOR                             /00848101/ [Concomitant]
     Indication: BLOOD CHOLESTEROL INCREASED
     Dosage: 20 MG, 1X/DAY:QD
     Route: 048
     Dates: start: 20090101
  3. VITAMIN B12                        /00056201/ [Concomitant]
     Indication: SUPPLEMENTATION THERAPY
     Dosage: 1000 MG, 1X/DAY:QD
     Route: 048
     Dates: start: 20100101
  4. VITAMIN D [Concomitant]
     Indication: SUPPLEMENTATION THERAPY
     Dosage: 400 IU, 1X/DAY:QD
     Route: 048
     Dates: start: 20020101
  5. ASPIRIN [Concomitant]
     Indication: PRODUCT USED FOR UNKNOWN INDICATION
     Dosage: 325 MG, 1X/DAY:QD
     Route: 048
     Dates: start: 20090101
  6. PENTASA [Suspect]
     Indication: CROHN'S DISEASE
     Dosage: 1000 MG, (2) 500 MG 3X/DAY:TID
     Route: 048
     Dates: start: 20101201, end: 20120202

REACTIONS (2)
  - SMALL INTESTINAL OBSTRUCTION [None]
  - DRUG INEFFECTIVE FOR UNAPPROVED INDICATION [None]
